FAERS Safety Report 13745550 (Version 3)
Quarter: 2019Q4

REPORT INFORMATION
  Report Type: Report from Study
  Country: BE (occurrence: BE)
  Receive Date: 20170712
  Receipt Date: 20191104
  Transmission Date: 20200122
  Serious: Yes (Hospitalization, Other)
  Sender: FDA-Public Use
  Company Number: PHHY2017BE042596

PATIENT
  Age: 54 Year
  Sex: Female
  Weight: 70 kg

DRUGS (3)
  1. GILENYA [Suspect]
     Active Substance: FINGOLIMOD HYDROCHLORIDE
     Indication: MULTIPLE SCLEROSIS
     Dosage: 0.5 MG, QD
     Route: 048
     Dates: start: 20140917
  2. AMOXICILLINE [Concomitant]
     Active Substance: AMOXICILLIN
     Indication: PHARYNGITIS
     Dosage: UNK
     Route: 065
     Dates: start: 20160621, end: 20160622
  3. GILENYA [Suspect]
     Active Substance: FINGOLIMOD HYDROCHLORIDE
     Dosage: UNK, QD
     Route: 048
     Dates: start: 20160623

REACTIONS (13)
  - Epilepsy [Recovered/Resolved]
  - Loss of consciousness [Unknown]
  - Amnesia [Unknown]
  - Hypotension [Unknown]
  - Syncope [Unknown]
  - Ingrowing nail [Unknown]
  - Malaise [Recovered/Resolved]
  - Malaise [Recovered/Resolved]
  - Discomfort [Recovered/Resolved]
  - Oropharyngeal pain [Recovered/Resolved]
  - Ligament sprain [Unknown]
  - Syncope [Recovered/Resolved]
  - Nasopharyngitis [Recovered/Resolved]

NARRATIVE: CASE EVENT DATE: 20160621
